FAERS Safety Report 19865299 (Version 2)
Quarter: 2022Q1

REPORT INFORMATION
  Report Type: Spontaneous
  Country: CA (occurrence: CA)
  Receive Date: 20210921
  Receipt Date: 20220215
  Transmission Date: 20220424
  Serious: Yes (Other)
  Sender: FDA-Public Use
  Company Number: CA-TAKEDA-2021TUS056984

PATIENT
  Age: 49 Week
  Sex: Male

DRUGS (1)
  1. HUMAN IMMUNOGLOBULIN G [Suspect]
     Active Substance: HUMAN IMMUNOGLOBULIN G
     Indication: Kawasaki^s disease
     Dosage: 4 GRAM PER KILOGRAM
     Route: 065
     Dates: start: 2021, end: 2021

REACTIONS (4)
  - Fatigue [Unknown]
  - Haemoglobin decreased [Unknown]
  - Jaundice [Unknown]
  - Tachycardia [Unknown]

NARRATIVE: CASE EVENT DATE: 20210101
